FAERS Safety Report 19424708 (Version 1)
Quarter: 2021Q2

REPORT INFORMATION
  Report Type: Spontaneous
  Country: US (occurrence: US)
  Receive Date: 20210616
  Receipt Date: 20210616
  Transmission Date: 20210717
  Serious: No
  Sender: FDA-Public Use
  Company Number: US-SK LIFE SCIENCE, INC-SKPVG-2021-000071

PATIENT

DRUGS (2)
  1. XCOPRI [Suspect]
     Active Substance: CENOBAMATE
     Dosage: 100 MILLIGRAM, QD
     Route: 048
     Dates: start: 20201201, end: 20201228
  2. XCOPRI [Suspect]
     Active Substance: CENOBAMATE
     Indication: PETIT MAL EPILEPSY
     Dosage: 50 MILLIGRAM
     Route: 048

REACTIONS (3)
  - Headache [Recovered/Resolved]
  - Bone pain [Recovered/Resolved]
  - Gait disturbance [Recovered/Resolved]

NARRATIVE: CASE EVENT DATE: 20201201
